FAERS Safety Report 5722147-X (Version None)
Quarter: 2008Q2

REPORT INFORMATION
  Report Type: 
  Country: None (occurrence: None)
  Receive Date: 20080429
  Receipt Date: 20070509
  Transmission Date: 20081010
  Serious: No
  Sender: FDA-Public Use
  Company Number: US-ASTRAZENECA-2007UW11127

PATIENT
  Age: 62 Year
  Sex: Female

DRUGS (7)
  1. NEXIUM [Suspect]
     Indication: GASTRITIS
     Route: 048
  2. ASCORBIC ACID [Concomitant]
  3. VITAMIN B6 [Concomitant]
  4. VITAMIN B-12 [Concomitant]
  5. FOLIUM [Concomitant]
  6. GLUCOSAMINE [Concomitant]
  7. GLUCOSAMINE [Concomitant]

REACTIONS (4)
  - ABDOMINAL PAIN UPPER [None]
  - BLOOD PRESSURE INCREASED [None]
  - DRUG INEFFECTIVE [None]
  - IMMUNE SYSTEM DISORDER [None]
